FAERS Safety Report 14915823 (Version 1)
Quarter: 2018Q2

REPORT INFORMATION
  Report Type: Other
  Country: None (occurrence: US)
  Receive Date: 20180518
  Receipt Date: 20180518
  Transmission Date: 20180711
  Serious: Yes (Death, Life-Threatening, Hospitalization, Other)
  Sender: FDA-Public Use
  Company Number: US-MEDAC PHARMA, INC.-2048079

PATIENT
  Sex: Male

DRUGS (5)
  1. ADALIMUMAB [Suspect]
     Active Substance: ADALIMUMAB
  2. ETOPOSIDE. [Suspect]
     Active Substance: ETOPOSIDE
  3. DEXAMETHASONE. [Suspect]
     Active Substance: DEXAMETHASONE
  4. PREDNISONE. [Suspect]
     Active Substance: PREDNISONE
  5. METHOTREXATE. [Suspect]
     Active Substance: METHOTREXATE
     Indication: RHEUMATOID ARTHRITIS

REACTIONS (2)
  - Condition aggravated [Fatal]
  - Viral infection [Fatal]
